FAERS Safety Report 19757573 (Version 2)
Quarter: 2021Q3

REPORT INFORMATION
  Report Type: Report from Study
  Country: US (occurrence: US)
  Receive Date: 20210828
  Receipt Date: 20210916
  Transmission Date: 20211014
  Serious: No
  Sender: FDA-Public Use
  Company Number: NVSC2021US194372

PATIENT
  Sex: Male

DRUGS (1)
  1. ENTRESTO [Suspect]
     Active Substance: SACUBITRIL\VALSARTAN
     Indication: PRODUCT USED FOR UNKNOWN INDICATION
     Dosage: 24 MG, BID
     Route: 048
     Dates: start: 20210526

REACTIONS (5)
  - Ill-defined disorder [Unknown]
  - Heart rate increased [Unknown]
  - Incorrect dose administered [Unknown]
  - Hypertension [Unknown]
  - Hypoacusis [Unknown]
